FAERS Safety Report 5201377-X (Version None)
Quarter: 2007Q1

REPORT INFORMATION
  Report Type: 
  Country: None (occurrence: None)
  Receive Date: 20070104
  Receipt Date: 20061228
  Transmission Date: 20070707
  Serious: Yes (Other)
  Sender: FDA-Public Use
  Company Number: 163-21880-06050152

PATIENT
  Age: 73 Year
  Sex: Male

DRUGS (8)
  1. REVLIMID [Suspect]
     Indication: MULTIPLE MYELOMA
     Dosage: SEE IMAGE
     Route: 048
     Dates: start: 20060309, end: 20060427
  2. REVLIMID [Suspect]
     Indication: PROSTATE CANCER
     Dosage: SEE IMAGE
     Route: 048
     Dates: start: 20060309, end: 20060427
  3. REVLIMID [Suspect]
     Indication: MULTIPLE MYELOMA
     Dosage: SEE IMAGE
     Route: 048
     Dates: start: 20061019, end: 20061101
  4. REVLIMID [Suspect]
     Indication: PROSTATE CANCER
     Dosage: SEE IMAGE
     Route: 048
     Dates: start: 20061019, end: 20061101
  5. REVLIMID [Suspect]
     Indication: MULTIPLE MYELOMA
     Dosage: SEE IMAGE
     Route: 048
     Dates: start: 20061212
  6. REVLIMID [Suspect]
     Indication: PROSTATE CANCER
     Dosage: SEE IMAGE
     Route: 048
     Dates: start: 20061212
  7. REVLIMID [Suspect]
  8. REVLIMID [Suspect]

REACTIONS (4)
  - BLOOD COUNT ABNORMAL [None]
  - LEUKOPENIA [None]
  - MYCOBACTERIAL INFECTION [None]
  - NEUTROPENIA [None]
